FAERS Safety Report 14821509 (Version 2)
Quarter: 2018Q3

REPORT INFORMATION
  Report Type: Spontaneous
  Country: US (occurrence: US)
  Receive Date: 20180427
  Receipt Date: 20180706
  Transmission Date: 20181010
  Serious: No
  Sender: FDA-Public Use
  Company Number: US-FRESENIUS KABI-FK201805025

PATIENT
  Age: 15 Year
  Sex: Male
  Weight: 71.6 kg

DRUGS (1)
  1. ETOPOSIDE INJECTION, USP [Suspect]
     Active Substance: ETOPOSIDE
     Indication: PRODUCT USED FOR UNKNOWN INDICATION
     Route: 065

REACTIONS (7)
  - Chest discomfort [Recovered/Resolved]
  - Infusion related reaction [Unknown]
  - Musculoskeletal discomfort [Recovered/Resolved]
  - Tongue oedema [Recovered/Resolved]
  - Lacrimation increased [Recovered/Resolved]
  - Erythema [Recovered/Resolved]
  - Abdominal discomfort [Recovered/Resolved]

NARRATIVE: CASE EVENT DATE: 20180321
